FAERS Safety Report 14626945 (Version 2)
Quarter: 2018Q1

REPORT INFORMATION
  Report Type: Report from Study
  Country: IT (occurrence: IT)
  Receive Date: 20180312
  Receipt Date: 20180327
  Transmission Date: 20180509
  Serious: Yes (Death)
  Sender: FDA-Public Use
  Company Number: IT-EMD SERONO-E2B_90028832

PATIENT
  Age: 60 Year
  Sex: Male

DRUGS (3)
  1. AVELUMAB [Suspect]
     Active Substance: AVELUMAB
     Indication: DIFFUSE LARGE B-CELL LYMPHOMA
     Dosage: 950 MG, EVERY 2 WEEKS, EACH 28-DAY CYCLE
     Route: 041
     Dates: start: 20171003, end: 20171003
  2. RITUXIMAB. [Suspect]
     Active Substance: RITUXIMAB
     Indication: DIFFUSE LARGE B-CELL LYMPHOMA
     Dosage: 780 MG, DAY 1 OF EACH 28-DAY CYCLE
     Route: 041
     Dates: start: 20171002, end: 20171002
  3. PF-05082566 [Suspect]
     Active Substance: INVESTIGATIONAL PRODUCT
     Indication: DIFFUSE LARGE B-CELL LYMPHOMA
     Dosage: 100 MG, ONCE EACH 28-DAY CYCLE
     Route: 041
     Dates: start: 20171003, end: 20171003

REACTIONS (1)
  - Death [Fatal]

NARRATIVE: CASE EVENT DATE: 20171026
